FAERS Safety Report 24533359 (Version 1)
Quarter: 2024Q4

REPORT INFORMATION
  Report Type: Spontaneous
  Country: US (occurrence: None)
  Receive Date: 20241018
  Receipt Date: 20241018
  Transmission Date: 20250115
  Serious: No
  Sender: Public
  Company Number: None

PATIENT
  Age: 83 Year
  Sex: Female
  Weight: 72.6 kg

DRUGS (1)
  1. HUMATROPE [Suspect]
     Active Substance: SOMATROPIN
     Indication: Apituitarism
     Dosage: FREQUENCY : DAILY;?
     Route: 058
     Dates: start: 20241014, end: 20241016

REACTIONS (2)
  - Incorrect dose administered [None]
  - Transcription medication error [None]

NARRATIVE: CASE EVENT DATE: 20241014
